FAERS Safety Report 5399330-9 (Version None)
Quarter: 2007Q3

REPORT INFORMATION
  Report Type: 
  Country: None (occurrence: None)
  Receive Date: 20070727
  Receipt Date: 20070717
  Transmission Date: 20080115
  Serious: Yes (Other)
  Sender: FDA-Public Use
  Company Number: US-ROCHE-452709

PATIENT
  Age: 30 Year
  Sex: Female
  Weight: 59 kg

DRUGS (2)
  1. ACCUTANE [Suspect]
     Route: 065
     Dates: start: 19990222, end: 19990709
  2. ACCUTANE [Suspect]
     Dosage: TAKEN FOR 6 MONTHS IN 1982 FOR AN UNKNOWN INDICATION
     Route: 065
     Dates: start: 19820101, end: 19820101

REACTIONS (11)
  - ADJUSTMENT DISORDER [None]
  - ANGER [None]
  - ANHEDONIA [None]
  - ANXIETY [None]
  - ARTHRITIS [None]
  - BONE DENSITY DECREASED [None]
  - DEPRESSION [None]
  - PHOTOSENSITIVITY REACTION [None]
  - PSYCHOMOTOR RETARDATION [None]
  - RHEUMATOID ARTHRITIS [None]
  - SYSTEMIC LUPUS ERYTHEMATOSUS [None]
